FAERS Safety Report 6829049-6 (Version None)
Quarter: 2010Q3

REPORT INFORMATION
  Report Type: 
  Country: None (occurrence: None)
  Receive Date: 20100709
  Receipt Date: 20070227
  Transmission Date: 20110219
  Serious: No
  Sender: FDA-Public Use
  Company Number: US-PFIZER INC-2007016326

PATIENT
  Sex: Female
  Weight: 74.39 kg

DRUGS (1)
  1. CHANTIX [Suspect]
     Indication: SMOKING CESSATION THERAPY
     Dates: start: 20070213

REACTIONS (6)
  - ABDOMINAL PAIN UPPER [None]
  - MALAISE [None]
  - MENTAL IMPAIRMENT [None]
  - NASOPHARYNGITIS [None]
  - NAUSEA [None]
  - THINKING ABNORMAL [None]
